FAERS Safety Report 12989740 (Version 1)
Quarter: 2016Q4

REPORT INFORMATION
  Report Type: Spontaneous
  Country: US (occurrence: US)
  Receive Date: 20161130
  Receipt Date: 20161130
  Transmission Date: 20170207
  Serious: No
  Sender: FDA-Public Use
  Company Number: None

PATIENT

DRUGS (1)
  1. NINLARO [Suspect]
     Active Substance: IXAZOMIB
     Indication: PLASMA CELL MYELOMA
     Dosage: 4MG CAP 1 DAILY X21/28DAYS ORAL
     Route: 048
     Dates: start: 20160810, end: 20161130

REACTIONS (2)
  - Amino acid metabolism disorder [None]
  - Drug ineffective [None]
